FAERS Safety Report 25056463 (Version 1)
Quarter: 2025Q1

REPORT INFORMATION
  Report Type: Spontaneous
  Country: IT (occurrence: IT)
  Receive Date: 20250310
  Receipt Date: 20250310
  Transmission Date: 20250409
  Serious: Yes (Life-Threatening, Other)
  Sender: PAREXEL
  Company Number: IT-STEMLINE THERAPEUTICS, INC-2025-STML-IT000221

PATIENT

DRUGS (1)
  1. ELZONRIS [Suspect]
     Active Substance: TAGRAXOFUSP-ERZS
     Indication: Blastic plasmacytoid dendritic cell neoplasia
     Route: 041
     Dates: start: 20241218, end: 20241220

REACTIONS (4)
  - Capillary leak syndrome [Recovered/Resolved]
  - Weight increased [Recovered/Resolved]
  - Hypotension [Recovered/Resolved]
  - Capillary permeability [Recovered/Resolved]

NARRATIVE: CASE EVENT DATE: 20241225
